FAERS Safety Report 23574923 (Version 1)
Quarter: 2024Q1

REPORT INFORMATION
  Report Type: Spontaneous
  Country: US (occurrence: US)
  Receive Date: 20240228
  Receipt Date: 20240228
  Transmission Date: 20240410
  Serious: Yes (Other)
  Sender: FDA-Public Use
  Company Number: US-ABBVIE-5654012

PATIENT
  Age: 32 Year
  Sex: Female

DRUGS (1)
  1. RINVOQ [Suspect]
     Active Substance: UPADACITINIB
     Indication: Rheumatoid arthritis
     Dosage: FORM STRENGTH WAS 15 MILLIGRAM.
     Route: 048

REACTIONS (3)
  - Intra-uterine contraceptive device removal [Recovering/Resolving]
  - COVID-19 [Recovering/Resolving]
  - Hormone level abnormal [Recovering/Resolving]

NARRATIVE: CASE EVENT DATE: 20240201
